FAERS Safety Report 5016788-5 (Version None)
Quarter: 2006Q2

REPORT INFORMATION
  Report Type: 
  Country: None (occurrence: None)
  Receive Date: 20060602
  Receipt Date: 20051229
  Transmission Date: 20061013
  Serious: No
  Sender: FDA-Public Use
  Company Number: US-GLAXOSMITHKLINE-A0587343A

PATIENT
  Age: 47 Year
  Sex: Male

DRUGS (2)
  1. AUGMENTIN XR [Suspect]
     Indication: TONSILLITIS
     Dosage: 1TAB TWICE PER DAY
     Route: 048
     Dates: start: 20051219, end: 20051229
  2. NO CONCURRENT MEDICATION [Concomitant]

REACTIONS (1)
  - TOOTH DISCOLOURATION [None]
